FAERS Safety Report 21748630 (Version 2)
Quarter: 2023Q2

REPORT INFORMATION
  Report Type: Spontaneous
  Country: US (occurrence: US)
  Receive Date: 20221219
  Receipt Date: 20230424
  Transmission Date: 20230721
  Serious: No
  Sender: FDA-Public Use
  Company Number: US-JNJFOC-20221006639

PATIENT
  Age: 69 Year
  Sex: Female

DRUGS (1)
  1. ELMIRON [Suspect]
     Active Substance: PENTOSAN POLYSULFATE SODIUM
     Indication: Cystitis interstitial
     Route: 048
     Dates: start: 2008, end: 20220328

REACTIONS (2)
  - Visual field defect [Unknown]
  - Off label use [Unknown]

NARRATIVE: CASE EVENT DATE: 20221003
